FAERS Safety Report 21508494 (Version 2)
Quarter: 2022Q4

REPORT INFORMATION
  Report Type: Spontaneous
  Country: US (occurrence: US)
  Receive Date: 20221026
  Receipt Date: 20221104
  Transmission Date: 20230113
  Serious: Yes (Other)
  Sender: FDA-Public Use
  Company Number: US-PFIZER INC-PV202200089757

PATIENT
  Age: 44 Year
  Sex: Female
  Weight: 72.57 kg

DRUGS (1)
  1. PREMPRO [Suspect]
     Active Substance: ESTROGENS, CONJUGATED\MEDROXYPROGESTERONE ACETATE
     Indication: Hormone therapy
     Dosage: 0.625/2.5 MG ONCE A DAY BY MOUTH AT NIGHT
     Route: 048

REACTIONS (3)
  - Bell^s palsy [Unknown]
  - Lyme disease [Unknown]
  - COVID-19 [Unknown]
